FAERS Safety Report 8508953-7 (Version None)
Quarter: 2012Q3

REPORT INFORMATION
  Report Type: 
  Country: None (occurrence: None)
  Receive Date: 20120713
  Receipt Date: 20120712
  Transmission Date: 20120928
  Serious: Yes (Other)
  Sender: FDA-Public Use
  Company Number: US-PFIZER INC-2012162504

PATIENT
  Age: 67 Year
  Sex: Female

DRUGS (1)
  1. PROTONIX [Suspect]

REACTIONS (1)
  - HAEMORRHOIDAL HAEMORRHAGE [None]
